FAERS Safety Report 19408510 (Version 1)
Quarter: 2021Q2

REPORT INFORMATION
  Report Type: Spontaneous
  Country: US (occurrence: US)
  Receive Date: 20210612
  Receipt Date: 20210612
  Transmission Date: 20210717
  Serious: Yes (Hospitalization)
  Sender: FDA-Public Use
  Company Number: US-AUROBINDO-AUR-APL-2021-024053

PATIENT
  Age: 60 Year
  Sex: Female

DRUGS (6)
  1. METHYLPHENIDATE HYDROCHLORIDE. [Suspect]
     Active Substance: METHYLPHENIDATE HYDROCHLORIDE
     Indication: DEPRESSIVE SYMPTOM
     Dosage: 40 MILLIGRAM, ONCE A DAY
     Route: 065
  2. TRAZODONE [Suspect]
     Active Substance: TRAZODONE HYDROCHLORIDE
     Indication: DEPRESSIVE SYMPTOM
     Dosage: 50 MILLIGRAM, ONCE A DAY
     Route: 065
  3. LURASIDONE [Concomitant]
     Active Substance: LURASIDONE
     Dosage: 80 MILLIGRAM, ONCE A DAY
     Route: 065
  4. LURASIDONE [Concomitant]
     Active Substance: LURASIDONE
     Indication: DEPRESSIVE SYMPTOM
     Dosage: 40 MILLIGRAM, ONCE A DAY
     Route: 065
  5. CLONAZEPAM. [Concomitant]
     Active Substance: CLONAZEPAM
     Indication: DEPRESSIVE SYMPTOM
     Dosage: 0.5 MILLIGRAM, TWO TIMES A DAY
     Route: 065
  6. FLUOXETINE [Suspect]
     Active Substance: FLUOXETINE HYDROCHLORIDE
     Indication: DEPRESSIVE SYMPTOM
     Dosage: 60 MILLIGRAM, ONCE A DAY
     Route: 065

REACTIONS (1)
  - Mania [Recovered/Resolved]
